FAERS Safety Report 14910968 (Version 2)
Quarter: 2018Q3

REPORT INFORMATION
  Report Type: Report from Study
  Country: None (occurrence: BR)
  Receive Date: 20180517
  Receipt Date: 20180813
  Transmission Date: 20181010
  Serious: Yes (Other)
  Sender: FDA-Public Use
  Company Number: BR-ABBVIE-18K-020-2357027-00

PATIENT
  Age: 36 Year
  Sex: Male
  Weight: 68 kg

DRUGS (5)
  1. HUMIRA [Suspect]
     Active Substance: ADALIMUMAB
     Route: 058
     Dates: start: 2018
  2. HUMIRA [Suspect]
     Active Substance: ADALIMUMAB
     Dosage: LOADING DOSE ? WEEK 2
     Route: 058
  3. CODEINE [Suspect]
     Active Substance: CODEINE
     Indication: TOOTH DISORDER
     Route: 065
  4. AZATHIOPRINE. [Concomitant]
     Active Substance: AZATHIOPRINE
     Indication: CROHN^S DISEASE
  5. HUMIRA [Suspect]
     Active Substance: ADALIMUMAB
     Indication: CROHN^S DISEASE
     Dosage: LOADING DOSE ? WEEK 0
     Route: 058
     Dates: start: 20171218, end: 20171218

REACTIONS (6)
  - Fistula [Unknown]
  - Purulence [Recovering/Resolving]
  - Hypoaesthesia oral [Unknown]
  - Gingivitis [Recovering/Resolving]
  - Tooth disorder [Recovering/Resolving]
  - Skin infection [Recovering/Resolving]

NARRATIVE: CASE EVENT DATE: 20180511
